FAERS Safety Report 14321151 (Version 9)
Quarter: 2025Q3

REPORT INFORMATION
  Report Type: Spontaneous
  Country: EU (occurrence: EU)
  Receive Date: 20171223
  Receipt Date: 20250726
  Transmission Date: 20251020
  Serious: Yes (Death, Other)
  Sender: AUROBINDO
  Company Number: EU-AUROBINDO-AUR-APL-2017-46322

PATIENT
  Age: 41 Year
  Sex: Male

DRUGS (3)
  1. OLANZAPINE [Suspect]
     Active Substance: OLANZAPINE
     Indication: Product used for unknown indication
     Route: 065
  2. TRIMIPRAMINE [Suspect]
     Active Substance: TRIMIPRAMINE
     Indication: Product used for unknown indication
     Route: 048
  3. METHAMPHETAMINE [Concomitant]
     Active Substance: METHAMPHETAMINE
     Indication: Product used for unknown indication
     Route: 065

REACTIONS (16)
  - Coma [Fatal]
  - Aspiration [Fatal]
  - Toxicity to various agents [Fatal]
  - Eyelid bleeding [Fatal]
  - Pulmonary haemorrhage [Fatal]
  - Petechiae [Fatal]
  - Internal haemorrhage [Fatal]
  - Skin haemorrhage [Fatal]
  - Hypoxia [Fatal]
  - Cardiomyopathy [Fatal]
  - Cell death [Fatal]
  - Drug interaction [Unknown]
  - Brain oedema [Unknown]
  - Visceral congestion [Unknown]
  - Pulmonary oedema [Unknown]
  - Oxygen saturation decreased [Unknown]

NARRATIVE: CASE EVENT DATE: 20160201
